FAERS Safety Report 7670953-7 (Version None)
Quarter: 2011Q3

REPORT INFORMATION
  Report Type: 
  Country: None (occurrence: None)
  Receive Date: 20110809
  Receipt Date: 20110808
  Transmission Date: 20111222
  Serious: No
  Sender: FDA-Public Use
  Company Number: US-PFIZER INC-2011181108

PATIENT
  Sex: Female

DRUGS (2)
  1. EFFEXOR XR [Suspect]
     Dosage: 75 MG (FREQUENCY UNKNOWN)
     Route: 048
  2. EFFEXOR XR [Suspect]
     Dosage: 150 MG (FREQUENCY UNKNOWN)
     Route: 048

REACTIONS (1)
  - NAUSEA [None]
